FAERS Safety Report 18418833 (Version 1)
Quarter: 2020Q4

REPORT INFORMATION
  Report Type: Spontaneous
  Country: US (occurrence: US)
  Receive Date: 20201022
  Receipt Date: 20201022
  Transmission Date: 20210114
  Serious: Yes (Hospitalization)
  Sender: FDA-Public Use
  Company Number: None

PATIENT
  Age: 68 Year
  Sex: Female
  Weight: 48.99 kg

DRUGS (21)
  1. MYCOPHENOLATE MOFETIL. [Concomitant]
     Active Substance: MYCOPHENOLATE MOFETIL
  2. VITAMIN D3 [Concomitant]
     Active Substance: CHOLECALCIFEROL
  3. ONDANSETRON 4 MG/2 ML VIAL [Concomitant]
  4. DEXAMETHASONE. [Concomitant]
     Active Substance: DEXAMETHASONE
  5. XARELTO [Concomitant]
     Active Substance: RIVAROXABAN
  6. AVASTIN [Concomitant]
     Active Substance: BEVACIZUMAB
  7. AMLODIPINE BESYLATE. [Concomitant]
     Active Substance: AMLODIPINE BESYLATE
  8. PACLITAXEL. [Suspect]
     Active Substance: PACLITAXEL
     Indication: CHOLANGIOCARCINOMA
     Dosage: ?          OTHER FREQUENCY:DAY 1 + 8 Q 21D;?
     Route: 042
     Dates: start: 20200720, end: 20201022
  9. EMEND [Concomitant]
     Active Substance: APREPITANT
  10. SIMVASTATIN. [Concomitant]
     Active Substance: SIMVASTATIN
  11. METOPROLOL SUCCINATE ER [Concomitant]
     Active Substance: METOPROLOL SUCCINATE
  12. FLUOROURACIL. [Concomitant]
     Active Substance: FLUOROURACIL
  13. CALCIUM CARBONATE ANTACID [Concomitant]
  14. FAMOTIDINE 20 MG/2 ML VIAL [Concomitant]
  15. RETACRIT [Concomitant]
     Active Substance: EPOETIN ALFA-EPBX
  16. VITAMIN B6 [Concomitant]
     Active Substance: PYRIDOXINE HYDROCHLORIDE
  17. ZARXIO 300 MCG/0.5 ML SYRN [Concomitant]
  18. OXALIPLATIN. [Suspect]
     Active Substance: OXALIPLATIN
     Indication: CHOLANGIOCARCINOMA
     Dosage: ?          OTHER FREQUENCY:ONCE EVERY 14 DAYS;?
     Route: 042
     Dates: start: 20190729, end: 20201022
  19. DIPHENHYDRAMINE 50 MG/ML VIAL [Concomitant]
  20. LEUCOVORIN. [Concomitant]
     Active Substance: LEUCOVORIN
  21. GEMCITABINE. [Concomitant]
     Active Substance: GEMCITABINE

REACTIONS (4)
  - Poverty of speech [None]
  - Malaise [None]
  - Hospitalisation [None]
  - Hypophagia [None]

NARRATIVE: CASE EVENT DATE: 20201022
